FAERS Safety Report 10406092 (Version 1)
Quarter: 2014Q1

REPORT INFORMATION
  Report Type: Spontaneous
  Country: US (occurrence: None)
  Receive Date: 20140228
  Receipt Date: 20140228
  Transmission Date: 20141002
  Serious: No
  Sender: FDA-Public Use
  Company Number: 225129LEO

PATIENT
  Sex: Male

DRUGS (1)
  1. PICATO (INGENOL MEBUTATE) (0.015 %, GEL) [Suspect]
     Indication: REFUSAL OF TREATMENT BY PATIENT
     Dosage: (1 D, DERMAL)
     Dates: start: 20131129, end: 20131201

REACTIONS (1)
  - Application site exfoliation [None]
